FAERS Safety Report 8068144-3 (Version None)
Quarter: 2012Q1

REPORT INFORMATION
  Report Type: 
  Country: None (occurrence: None)
  Receive Date: 20120124
  Receipt Date: 20110927
  Transmission Date: 20120608
  Serious: No
  Sender: FDA-Public Use
  Company Number: US-AMGEN-USASP2011049923

PATIENT
  Age: 75 Year
  Sex: Female

DRUGS (7)
  1. PROLIA [Suspect]
     Indication: OSTEOPOROSIS POSTMENOPAUSAL
     Dosage: UNK UNK, Q6MO
     Dates: start: 20110101
  2. LISINOPRIL [Concomitant]
     Dosage: UNK
  3. VITAMIN B-12 [Concomitant]
     Dosage: UNK
  4. BONIVA [Concomitant]
     Dosage: UNK
  5. THYROID TAB [Concomitant]
     Dosage: UNK
  6. ASPIRIN [Concomitant]
     Dosage: UNK
  7. TRAVATAN Z [Concomitant]
     Dosage: UNK

REACTIONS (1)
  - INJECTION SITE PAIN [None]
